FAERS Safety Report 6994536-7 (Version None)
Quarter: 2010Q3

REPORT INFORMATION
  Report Type: 
  Country: None (occurrence: None)
  Receive Date: 20100917
  Receipt Date: 20100910
  Transmission Date: 20110219
  Serious: Yes (Other)
  Sender: FDA-Public Use
  Company Number: PT-AMGEN-QUU437191

PATIENT
  Sex: Female

DRUGS (4)
  1. NEULASTA [Suspect]
     Indication: CHEMOTHERAPY
     Route: 058
     Dates: start: 20100729
  2. FLUOROURACIL [Concomitant]
     Dates: start: 20100708
  3. EPIRUBICIN [Concomitant]
     Dates: start: 20100708
  4. CYCLOPHOSPHAMIDE [Concomitant]
     Dates: start: 20100708

REACTIONS (1)
  - NEUTROPENIA [None]
